FAERS Safety Report 23435401 (Version 6)
Quarter: 2024Q3

REPORT INFORMATION
  Report Type: Report from Study
  Country: AT (occurrence: AT)
  Receive Date: 20240123
  Receipt Date: 20240706
  Transmission Date: 20241016
  Serious: Yes (Hospitalization, Other)
  Sender: ABBVIE
  Company Number: AT-ABBVIE-5516415

PATIENT
  Age: 73 Year
  Sex: Male
  Weight: 79 kg

DRUGS (28)
  1. VENETOCLAX [Suspect]
     Active Substance: VENETOCLAX
     Indication: Acute myeloid leukaemia
     Dosage: RAMP-UP?INCREASED DOSAGE: INTERACTION
     Route: 048
     Dates: start: 20231114, end: 20231114
  2. VENETOCLAX [Suspect]
     Active Substance: VENETOCLAX
     Indication: Acute myeloid leukaemia
     Dosage: RAMP-UP
     Route: 048
     Dates: start: 20231115, end: 20231115
  3. VENETOCLAX [Suspect]
     Active Substance: VENETOCLAX
     Indication: Acute myeloid leukaemia
     Route: 048
     Dates: start: 20231211, end: 20231217
  4. VENETOCLAX [Suspect]
     Active Substance: VENETOCLAX
     Indication: Acute myeloid leukaemia
     Dosage: 0 MG
     Route: 048
     Dates: start: 20231121, end: 20231210
  5. VENETOCLAX [Suspect]
     Active Substance: VENETOCLAX
     Indication: Acute myeloid leukaemia
     Dosage: 0 MG
     Route: 048
     Dates: start: 20231218, end: 20240118
  6. VENETOCLAX [Suspect]
     Active Substance: VENETOCLAX
     Indication: Acute myeloid leukaemia
     Route: 048
     Dates: start: 20231116, end: 20231116
  7. VENETOCLAX [Suspect]
     Active Substance: VENETOCLAX
     Indication: Acute myeloid leukaemia
     Route: 048
     Dates: start: 20231117, end: 20231120
  8. TAZOBACTAM [Concomitant]
     Active Substance: TAZOBACTAM
     Indication: Product used for unknown indication
     Route: 042
     Dates: start: 20231116, end: 20231124
  9. TAZOBACTAM [Concomitant]
     Active Substance: TAZOBACTAM
     Indication: Product used for unknown indication
     Dosage: 0.5 MG
     Route: 042
     Dates: start: 20231116, end: 20231124
  10. RASBURICASE [Concomitant]
     Active Substance: RASBURICASE
     Indication: Supportive care
     Dates: start: 20231113, end: 20231113
  11. RASBURICASE [Concomitant]
     Active Substance: RASBURICASE
     Indication: Supportive care
     Dosage: DAILY?1.5 MG
     Dates: start: 20231113, end: 20231113
  12. ASPIRIN [Concomitant]
     Active Substance: ASPIRIN
     Indication: Product used for unknown indication
     Dosage: DAILY
     Route: 048
     Dates: start: 20221001
  13. PIPERACILLIN [Concomitant]
     Active Substance: PIPERACILLIN
     Indication: Product used for unknown indication
     Route: 042
     Dates: start: 20231116, end: 20231124
  14. AZACITIDINE [Concomitant]
     Active Substance: AZACITIDINE
     Indication: Product used for unknown indication
     Dosage: MG, STANDARD DOSAGE?72.06 MG
     Dates: start: 20231114, end: 20231120
  15. AZACITIDINE [Concomitant]
     Active Substance: AZACITIDINE
     Indication: Product used for unknown indication
     Dosage: 0 MG
     Dates: start: 20231121, end: 20231210
  16. AZACITIDINE [Concomitant]
     Active Substance: AZACITIDINE
     Indication: Product used for unknown indication
     Dosage: 72.06 MG
     Dates: start: 20231218, end: 20231219
  17. AZACITIDINE [Concomitant]
     Active Substance: AZACITIDINE
     Indication: Product used for unknown indication
     Dosage: 72.06 MG
     Dates: start: 20231211, end: 20231215
  18. AZACITIDINE [Concomitant]
     Active Substance: AZACITIDINE
     Indication: Product used for unknown indication
     Dosage: 0 MG
     Dates: start: 20231220, end: 20240118
  19. VEKLURY [Concomitant]
     Active Substance: REMDESIVIR
     Indication: Infection
     Route: 048
     Dates: start: 20240109, end: 20240109
  20. PANTOPRAZOLE SODIUM [Concomitant]
     Active Substance: PANTOPRAZOLE SODIUM
     Indication: Product used for unknown indication
     Dosage: FREQUENCY TEXT: ONCE A DAY
     Route: 048
     Dates: start: 20221001
  21. NEBIVOLOL HYDROCHLORIDE [Concomitant]
     Active Substance: NEBIVOLOL HYDROCHLORIDE
     Indication: Product used for unknown indication
     Route: 048
     Dates: start: 20221001
  22. NEBIVOLOL HYDROCHLORIDE [Concomitant]
     Active Substance: NEBIVOLOL HYDROCHLORIDE
     Indication: Product used for unknown indication
     Dosage: FREQUENCY TEXT: ONCE A DAY?2.5 MG
     Route: 048
     Dates: start: 20221001
  23. AVELOX [Concomitant]
     Active Substance: MOXIFLOXACIN HYDROCHLORIDE
     Indication: Infection
     Route: 042
     Dates: start: 20240109, end: 20240119
  24. RAMIPRIL [Concomitant]
     Active Substance: RAMIPRIL
     Indication: Product used for unknown indication
     Dosage: FREQUENCY TEXT: ONCE A DAY
     Route: 048
     Dates: start: 20230301
  25. AROSUVA [Concomitant]
     Indication: Product used for unknown indication
     Dosage: FREQUENCY TEXT: ONCE A DAY
     Route: 048
     Dates: start: 20230601
  26. ONDANSETRON [Concomitant]
     Active Substance: ONDANSETRON
     Indication: Supportive care
     Dosage: FREQUENCY OF APPLICATION: DAILY
     Dates: start: 20231113
  27. EXJADE [Concomitant]
     Active Substance: DEFERASIROX
     Indication: Product used for unknown indication
     Dosage: FREQUENCY OF APPLICATION: DAILY
     Route: 048
     Dates: start: 20230601
  28. METOCLOPRAMIDE [Concomitant]
     Active Substance: METOCLOPRAMIDE
     Indication: Supportive care
     Dosage: FREQUENCY- AS NEEDED
     Dates: start: 20231113

REACTIONS (9)
  - COVID-19 [Not Recovered/Not Resolved]
  - Abscess [Recovered/Resolved]
  - Infection [Recovered/Resolved]
  - Influenza [Not Recovered/Not Resolved]
  - Rash [Unknown]
  - Thrombocytopenia [Not Recovered/Not Resolved]
  - Anaemia [Recovered/Resolved]
  - Anaemia [Recovered/Resolved]
  - Anaemia [Recovered/Resolved]

NARRATIVE: CASE EVENT DATE: 20231118
